FAERS Safety Report 5614126-8 (Version None)
Quarter: 2008Q1

REPORT INFORMATION
  Report Type: 
  Country: None (occurrence: None)
  Receive Date: 20080205
  Receipt Date: 20080201
  Transmission Date: 20080703
  Serious: Yes (Death, Other)
  Sender: FDA-Public Use
  Company Number: US-WYE-H01534107

PATIENT
  Age: 76 Year
  Sex: Male
  Weight: 90.3 kg

DRUGS (8)
  1. TORISEL [Suspect]
     Indication: RENAL CELL CARCINOMA
     Route: 042
     Dates: start: 20071015, end: 20071113
  2. TRICOR [Concomitant]
     Indication: BLOOD TRIGLYCERIDES INCREASED
  3. AMARYL [Concomitant]
     Indication: DIABETES MELLITUS
  4. NEXIUM [Concomitant]
     Indication: GASTROOESOPHAGEAL REFLUX DISEASE
  5. HYDRALAZINE HCL [Concomitant]
     Indication: HYPERTENSION
  6. COREG [Concomitant]
     Indication: HYPERTENSION
  7. ZEMPLAR [Concomitant]
     Indication: HYPERPARATHYROIDISM
     Dosage: 2 MCG DAILY
  8. SYNTHROID [Concomitant]
     Indication: HYPOTHYROIDISM
     Dosage: 125 MCG DAILY

REACTIONS (1)
  - HYPOGLYCAEMIA [None]
